FAERS Safety Report 5012022-0 (Version None)
Quarter: 2006Q2

REPORT INFORMATION
  Report Type: 
  Country: None (occurrence: None)
  Receive Date: 20060524
  Receipt Date: 20060510
  Transmission Date: 20061013
  Serious: Yes (Other)
  Sender: FDA-Public Use
  Company Number: 2006-BP-05368RO

PATIENT
  Age: 54 Year
  Sex: Male

DRUGS (2)
  1. AZATHIOPRINE [Suspect]
     Indication: CROHN'S DISEASE
     Dosage: 2.5 MG/KG/ D X MONTHS
  2. AZATHIOPRINE [Suspect]
     Indication: DISEASE RECURRENCE
     Dosage: 2.5 MG/KG/ D X MONTHS

REACTIONS (6)
  - ANOREXIA [None]
  - JAUNDICE [None]
  - LEUKOPENIA [None]
  - NAUSEA [None]
  - NODULAR REGENERATIVE HYPERPLASIA [None]
  - THROMBOCYTOPENIA [None]
